FAERS Safety Report 5492216-0 (Version None)
Quarter: 2007Q4

REPORT INFORMATION
  Report Type: 
  Country: None (occurrence: None)
  Receive Date: 20071022
  Receipt Date: 20071005
  Transmission Date: 20080405
  Serious: Yes (Other)
  Sender: FDA-Public Use
  Company Number: JP-ASTRAZENECA-2007AP06553

PATIENT

DRUGS (2)
  1. SEROQUEL [Suspect]
     Route: 064
  2. ZOLPIDEM [Suspect]
     Route: 064

REACTIONS (2)
  - DRUG EXPOSURE DURING PREGNANCY [None]
  - RESPIRATORY DISTRESS [None]
